FAERS Safety Report 4860272-6 (Version None)
Quarter: 2005Q4

REPORT INFORMATION
  Report Type: 
  Country: None (occurrence: None)
  Receive Date: 20051215
  Receipt Date: 20051204
  Transmission Date: 20060501
  Serious: Yes (Other)
  Sender: FDA-Public Use
  Company Number: 2005162797

PATIENT
  Age: 20 Year
  Sex: Male
  Weight: 72.5755 kg

DRUGS (1)
  1. DRAMAMINE [Suspect]
     Indication: INTENTIONAL OVERDOSE
     Dosage: 24 TABLETS ONCE, ORAL
     Route: 048
     Dates: start: 20051203, end: 20051203

REACTIONS (3)
  - HALLUCINATION [None]
  - INTENTIONAL OVERDOSE [None]
  - LOGORRHOEA [None]
